FAERS Safety Report 4276828-8 (Version None)
Quarter: 2004Q1

REPORT INFORMATION
  Report Type: 
  Country: None (occurrence: None)
  Receive Date: 20040120
  Receipt Date: 20040109
  Transmission Date: 20041129
  Serious: Yes (Hospitalization, Other)
  Sender: FDA-Public Use
  Company Number: 2003190330JP

PATIENT
  Age: 80 Year
  Sex: Male

DRUGS (6)
  1. ALDACTONE [Suspect]
     Indication: HYPERTENSION
     Dosage: 50 MG, DAILY, ORAL
     Route: 048
  2. SYNRYTHM (PILSICAINIDE HYDROCHLORIDE) [Concomitant]
  3. AMLODIPINE BESYLATE [Concomitant]
  4. DIAZEPAM [Concomitant]
  5. BUFFERIN [Concomitant]
  6. LASIX [Concomitant]

REACTIONS (7)
  - BETA 2 MICROGLOBULIN INCREASED [None]
  - DISEASE PROGRESSION [None]
  - GLOMERULONEPHRITIS MEMBRANOUS [None]
  - GLOMERULONEPHRITIS MINIMAL LESION [None]
  - HYPOPROTEINAEMIA [None]
  - OEDEMA PERIPHERAL [None]
  - PROTEIN URINE PRESENT [None]
